FAERS Safety Report 17358973 (Version 1)
Quarter: 2020Q1

REPORT INFORMATION
  Report Type: Spontaneous
  Country: NO (occurrence: NO)
  Receive Date: 20200202
  Receipt Date: 20200202
  Transmission Date: 20200409
  Serious: Yes (Other)
  Sender: FDA-Public Use
  Company Number: NO-TEVA-2020-NO-1177918

PATIENT
  Age: 49 Year
  Sex: Female
  Weight: 64 kg

DRUGS (3)
  1. TRAMADOL ACTAVIS [Suspect]
     Active Substance: TRAMADOL
     Dosage: UNIT DOSE STATED BY THE PATIENT: 50 (?)
     Dates: start: 20191111, end: 20191121
  2. LAMICTAL [Concomitant]
     Active Substance: LAMOTRIGINE
     Dates: start: 201808
  3. EFEXOR DEPOT [Concomitant]
     Active Substance: VENLAFAXINE HYDROCHLORIDE
     Dates: start: 200108

REACTIONS (1)
  - Respiratory arrest [Recovered/Resolved]

NARRATIVE: CASE EVENT DATE: 20191111
